FAERS Safety Report 6485279-7 (Version None)
Quarter: 2009Q4

REPORT INFORMATION
  Report Type: 
  Country: None (occurrence: None)
  Receive Date: 20091209
  Receipt Date: 20091201
  Transmission Date: 20100525
  Serious: Yes (Hospitalization, Other)
  Sender: FDA-Public Use
  Company Number: US-MERCK-0911USA04304

PATIENT
  Age: 87 Year
  Sex: Female

DRUGS (2)
  1. FOSAMAX [Suspect]
     Indication: OSTEOPOROSIS
     Route: 048
     Dates: start: 19980101
  2. ASPIRIN [Concomitant]
     Route: 065

REACTIONS (2)
  - HEART RATE INCREASED [None]
  - UPPER LIMB FRACTURE [None]
